FAERS Safety Report 10614721 (Version 1)
Quarter: 2014Q4

REPORT INFORMATION
  Report Type: Spontaneous
  Country: US (occurrence: US)
  Receive Date: 20141201
  Receipt Date: 20141201
  Transmission Date: 20150529
  Serious: Yes (Disabling, Other)
  Sender: FDA-Public Use
  Company Number: PHHY2014US154231

PATIENT
  Sex: Female

DRUGS (4)
  1. DORZOLAMIDE [Interacting]
     Active Substance: DORZOLAMIDE
     Dosage: EYE DROPS, (IN RIGHT EYE)
     Route: 065
  2. TECFIDERA [Concomitant]
     Active Substance: DIMETHYL FUMARATE
     Indication: PRODUCT USED FOR UNKNOWN INDICATION
     Route: 065
  3. LUCENTIS [Suspect]
     Active Substance: RANIBIZUMAB
     Indication: MACULAR OEDEMA
     Dosage: (IN RIGHT EYE)
     Route: 031
     Dates: start: 2014
  4. DORZOLAMIDE [Interacting]
     Active Substance: DORZOLAMIDE
     Indication: MULTIPLE SCLEROSIS
     Dosage: EYE DROPS, (IN LEFT EYE)
     Route: 065

REACTIONS (4)
  - Drug interaction [Unknown]
  - Visual acuity reduced [Unknown]
  - Visual impairment [Unknown]
  - Optic neuritis [Not Recovered/Not Resolved]
